FAERS Safety Report 12432126 (Version 1)
Quarter: 2016Q2

REPORT INFORMATION
  Report Type: Spontaneous
  Country: CH (occurrence: CH)
  Receive Date: 20160603
  Receipt Date: 20160603
  Transmission Date: 20160815
  Serious: Yes (Hospitalization)
  Sender: FDA-Public Use
  Company Number: CH-BAYER-2016-106239

PATIENT
  Age: 83 Year
  Sex: Male

DRUGS (15)
  1. ZYLORIC [Suspect]
     Active Substance: ALLOPURINOL
     Indication: GOUT
     Dosage: 50 MG, QOD
     Route: 048
     Dates: start: 20160226
  2. AMLODIPIN [Concomitant]
     Active Substance: AMLODIPINE BESYLATE
     Dosage: 10 MG, QD
     Route: 048
     Dates: start: 20160218
  3. NEXIUM [Concomitant]
     Active Substance: ESOMEPRAZOLE MAGNESIUM
     Dosage: 20 MG, QD
     Route: 048
     Dates: end: 20160321
  4. AUGMENTIN [Suspect]
     Active Substance: AMOXICILLIN\CLAVULANATE POTASSIUM
     Indication: PNEUMONIA
     Dosage: 1.2 MG, TID
     Route: 048
     Dates: start: 20160219, end: 20160225
  5. ENALAPRIL [Concomitant]
     Active Substance: ENALAPRIL
     Dosage: 2.5 MG, BID
     Route: 048
     Dates: start: 20160322
  6. GALENIC /PIPERACILLIN/TAZOBACTAM [Suspect]
     Active Substance: PIPERACILLIN SODIUM\TAZOBACTAM SODIUM
     Indication: PNEUMONIA
     Dosage: 4.5 G, BID
     Route: 041
     Dates: start: 20160225, end: 20160302
  7. LANTUS [Concomitant]
     Active Substance: INSULIN GLARGINE
     Route: 058
     Dates: start: 20160302
  8. ASPIRIN CARDIO [Suspect]
     Active Substance: ASPIRIN
     Dosage: 250 MG, ONCE LOADING DOSE
     Route: 042
     Dates: start: 20160218, end: 20160218
  9. ZYLORIC [Suspect]
     Active Substance: ALLOPURINOL
     Indication: GOUT
     Dosage: 25 MG, QOD
     Dates: start: 20160308
  10. ASPIRIN CARDIO [Suspect]
     Active Substance: ASPIRIN
     Dosage: 100 MG, QD
     Route: 048
     Dates: start: 20160219
  11. COLCHICINE. [Interacting]
     Active Substance: COLCHICINE
     Indication: GOUT
     Dosage: .5 MG, QD
     Route: 048
     Dates: start: 20160219
  12. MADOPAR [Concomitant]
     Active Substance: BENSERAZIDE HYDROCHLORIDE\LEVODOPA
     Dosage: 125 MG, TID
     Route: 048
  13. GLUCOPHAGE [Concomitant]
     Active Substance: METFORMIN HYDROCHLORIDE
     Dosage: 850 MG, BID
     Route: 048
  14. ATORVASTATIN [Interacting]
     Active Substance: ATORVASTATIN
     Indication: LIPIDS INCREASED
     Dosage: 80 MG, QD
     Route: 048
     Dates: start: 20160218
  15. SIFROL [Concomitant]
     Active Substance: PRAMIPEXOLE
     Dosage: .375 MG, QD
     Route: 048

REACTIONS (1)
  - Cholestasis [Recovering/Resolving]

NARRATIVE: CASE EVENT DATE: 20160220
